FAERS Safety Report 20412798 (Version 2)
Quarter: 2022Q1

REPORT INFORMATION
  Report Type: Report from Study
  Country: US (occurrence: None)
  Receive Date: 20220201
  Receipt Date: 20220318
  Transmission Date: 20220424
  Serious: Yes (Hospitalization)
  Sender: FDA-Public Use
  Company Number: US-Eisai Medical Research-EC-2022-107523

PATIENT
  Age: 71 Year
  Sex: Male
  Weight: 83.9 kg

DRUGS (20)
  1. LENVIMA [Suspect]
     Active Substance: LENVATINIB
     Indication: Renal cancer
     Route: 048
     Dates: start: 20210914, end: 20210927
  2. LENVIMA [Suspect]
     Active Substance: LENVATINIB
     Indication: Renal cancer
     Route: 048
     Dates: start: 2021, end: 202201
  3. LENVIMA [Suspect]
     Active Substance: LENVATINIB
     Route: 048
     Dates: start: 2022
  4. ALLOPURINOL [Concomitant]
     Active Substance: ALLOPURINOL
  5. CALCIUM CARBONATE [Concomitant]
     Active Substance: CALCIUM CARBONATE
  6. ELIQUIS [Concomitant]
     Active Substance: APIXABAN
  7. LEVOTHYROXINE SODIUM [Concomitant]
     Active Substance: LEVOTHYROXINE SODIUM
  8. EVEROLIMUS [Concomitant]
     Active Substance: EVEROLIMUS
  9. LISINOPRIL [Concomitant]
     Active Substance: LISINOPRIL
  10. METOPROLOL SUCCINATE [Concomitant]
     Active Substance: METOPROLOL SUCCINATE
  11. TAMSULOSIN HYDROCHLORIDE [Concomitant]
     Active Substance: TAMSULOSIN HYDROCHLORIDE
  12. AMOXICILLIN-CLAVULANAT [Concomitant]
  13. LANTUS SOLOSTAR [Concomitant]
     Active Substance: INSULIN GLARGINE
     Dosage: 100/ML
  14. OMEPRAZOLE [Concomitant]
     Active Substance: OMEPRAZOLE
  15. FUROSEMIDE [Concomitant]
     Active Substance: FUROSEMIDE
  16. MIRTAZAPINE [Concomitant]
     Active Substance: MIRTAZAPINE
  17. HYDROCORTISONE [Concomitant]
     Active Substance: HYDROCORTISONE
  18. INSULIN LISPRO KWIKPEN [Concomitant]
     Dosage: 100/ML
  19. HYDROCODONE-ACETAMINOP [Concomitant]
     Dosage: 5 MG-32
  20. ONDANSETRON [Concomitant]
     Active Substance: ONDANSETRON

REACTIONS (1)
  - Thrombosis [Recovering/Resolving]

NARRATIVE: CASE EVENT DATE: 20220101
